FAERS Safety Report 6388324-2 (Version None)
Quarter: 2009Q4

REPORT INFORMATION
  Report Type: 
  Country: None (occurrence: None)
  Receive Date: 20091001
  Receipt Date: 20091001
  Transmission Date: 20100525
  Serious: Yes (Other)
  Sender: FDA-Public Use
  Company Number: None

PATIENT
  Age: 29 Year
  Sex: Female
  Weight: 58.9676 kg

DRUGS (1)
  1. KENALOG [Suspect]
     Indication: INJECTION SITE REACTION
     Dosage: 40 MG/ML ONCE IM ONCE
     Route: 030

REACTIONS (1)
  - INJECTION SITE ATROPHY [None]
